FAERS Safety Report 8120907 (Version 6)
Quarter: 2013Q3

REPORT INFORMATION
  Report Type: Report from Study
  Country: US (occurrence: US)
  Receive Date: 20110906
  Receipt Date: 20130903
  Transmission Date: 20140515
  Serious: Yes (Hospitalization)
  Sender: FDA-Public Use
  Company Number: PHHO2011US12436

PATIENT
  Age: 84 Year
  Sex: Female
  Weight: 79.3 kg

DRUGS (26)
  1. HYDROCHLOROTHIAZIDE [Suspect]
     Dosage: 25 MG, QD
     Route: 048
     Dates: end: 20110801
  2. IRBESARTAN [Suspect]
     Dosage: 75 MG, Q5W
     Dates: end: 20110801
  3. CYCLOBENZAPRINE [Suspect]
     Dosage: 20 MG, QHS
     Route: 048
     Dates: end: 20110801
  4. CYCLOBENZAPRINE [Suspect]
     Dosage: 05 MG, QHS
     Route: 048
     Dates: start: 20110804
  5. PLACEBO [Suspect]
     Indication: CARDIOVASCULAR DISORDER
     Route: 048
     Dates: start: 20090619, end: 20110709
  6. DILTIAZEM [Suspect]
     Indication: HYPERTENSION
     Dosage: 180 MG, DAILY
     Route: 048
     Dates: start: 20090219
  7. LANTUS [Suspect]
     Indication: TYPE 2 DIABETES MELLITUS
     Dosage: 45 IU, DAILY
     Route: 058
     Dates: end: 20110801
  8. NOVOLOG [Suspect]
     Indication: TYPE 2 DIABETES MELLITUS
     Dosage: 46 IU, BID
     Route: 058
     Dates: end: 20110801
  9. CENTRUM SILVER [Concomitant]
     Dosage: 1 DF, UNK
     Route: 048
  10. COLACE [Concomitant]
     Dosage: 100 MG, QD
     Route: 048
     Dates: start: 20110714
  11. FLUTICASONE [Concomitant]
     Dosage: 25 DF (5 UG / SPRAY), EACH NOSTRIL, QD
  12. FLUTICASONE [Concomitant]
     Dosage: 25 UNK, UNK
  13. GLUCOSAMINE W/CHONDROITIN [Concomitant]
     Route: 048
  14. AVAPRO [Concomitant]
     Dosage: 75 MG, DAILY
     Route: 048
  15. LEVOTHYROXINE [Concomitant]
     Dosage: 50 UG, DAILY
     Route: 048
  16. LOVASTATIN [Concomitant]
     Dosage: 40 MG, DAILY
     Route: 048
  17. NAPROXEN [Concomitant]
     Dosage: 500 MG, BID
     Route: 048
  18. NIACIN [Concomitant]
     Dosage: 1000 MG, DAILY
  19. ALKA-SELTZER [Concomitant]
     Indication: PROPHYLAXIS
     Dosage: 1-2 DF, UNK
  20. POLYETHYLENE GLYCOL [Concomitant]
  21. CASANTHRANOL W/DOCUSATE SODIUM [Concomitant]
     Dosage: 2 DF, UNK
     Dates: start: 20110710
  22. WELLBUTRIN [Concomitant]
  23. OMEPRAZOLE [Concomitant]
  24. SYNTHROID [Concomitant]
  25. MEVACOR [Concomitant]
  26. PRILOSEC [Concomitant]
     Dosage: 20 MG, DAILY
     Route: 048

REACTIONS (8)
  - Syncope [Recovered/Resolved]
  - Fibula fracture [Recovering/Resolving]
  - Vertigo [Recovered/Resolved]
  - Nausea [Recovered/Resolved]
  - Vomiting [Recovered/Resolved]
  - Dehydration [Recovered/Resolved]
  - Electrolyte imbalance [Recovered/Resolved]
  - Concomitant disease progression [Recovering/Resolving]
